FAERS Safety Report 7532578-3 (Version None)
Quarter: 2011Q2

REPORT INFORMATION
  Report Type: 
  Country: None (occurrence: None)
  Receive Date: 20110608
  Receipt Date: 20110530
  Transmission Date: 20111010
  Serious: Yes (Hospitalization)
  Sender: FDA-Public Use
  Company Number: PHHY2009DE67767

PATIENT
  Sex: Female

DRUGS (1)
  1. EXTAVIA [Suspect]
     Indication: MULTIPLE SCLEROSIS
     Dosage: 1 ML, EVERY OTHER DAY
     Route: 058
     Dates: start: 20090529

REACTIONS (2)
  - PRIMARY PROGRESSIVE MULTIPLE SCLEROSIS [None]
  - INJECTION SITE ABSCESS [None]
